FAERS Safety Report 7492917-9 (Version None)
Quarter: 2011Q2

REPORT INFORMATION
  Report Type: 
  Country: None (occurrence: None)
  Receive Date: 20110520
  Receipt Date: 20110512
  Transmission Date: 20111010
  Serious: Yes (Death, Hospitalization, Other)
  Sender: FDA-Public Use
  Company Number: US-BIOGENIDEC-2011BI010473

PATIENT
  Sex: Female

DRUGS (1)
  1. AVONEX [Suspect]
     Indication: MULTIPLE SCLEROSIS
     Route: 030
     Dates: start: 20100905, end: 20110228

REACTIONS (8)
  - KIDNEY RUPTURE [None]
  - MOUTH HAEMORRHAGE [None]
  - HEPATIC RUPTURE [None]
  - AMMONIA INCREASED [None]
  - ILL-DEFINED DISORDER [None]
  - SWELLING [None]
  - DEATH [None]
  - MALAISE [None]
